FAERS Safety Report 14815927 (Version 1)
Quarter: 2018Q2

REPORT INFORMATION
  Report Type: Spontaneous
  Country: ES (occurrence: ES)
  Receive Date: 20180426
  Receipt Date: 20180426
  Transmission Date: 20180711
  Serious: Yes (Other)
  Sender: FDA-Public Use
  Company Number: ES-ALSI-201800293

PATIENT
  Age: 72 Year
  Sex: Female

DRUGS (3)
  1. MIDAZOLAM [Concomitant]
     Active Substance: MIDAZOLAM HYDROCHLORIDE
  2. FENTANYL. [Concomitant]
     Active Substance: FENTANYL
  3. OXYGEN. [Suspect]
     Active Substance: OXYGEN

REACTIONS (1)
  - Gastric perforation [Recovered/Resolved]
